FAERS Safety Report 21796790 (Version 1)
Quarter: 2022Q4

REPORT INFORMATION
  Report Type: Spontaneous
  Country: US (occurrence: US)
  Receive Date: 20221230
  Receipt Date: 20221230
  Transmission Date: 20230112
  Serious: No
  Sender: FDA-Public Use
  Company Number: US-BRISTOL-MYERS SQUIBB COMPANY-2022-160533

PATIENT
  Age: 72 Year
  Sex: Female

DRUGS (1)
  1. POMALYST [Suspect]
     Active Substance: POMALIDOMIDE
     Indication: Plasma cell myeloma refractory
     Dosage: FREQUENCY: TAKE 1 CAPSULE BY MOUTH ONCE DAILY. TAKE ON AN EMPTY STOMACH, 2HOURS BEFORE OR 2 HOURS AF
     Route: 048
     Dates: start: 20210312

REACTIONS (3)
  - Feeling abnormal [Unknown]
  - Tremor [Unknown]
  - Asthenia [Unknown]
